FAERS Safety Report 10203710 (Version 3)
Quarter: 2015Q1

REPORT INFORMATION
  Report Type: Spontaneous
  Country: US (occurrence: None)
  Receive Date: 20140523
  Receipt Date: 20150113
  Transmission Date: 20150720
  Serious: Yes (Other)
  Sender: FDA-Public Use
  Company Number: 2014-US-006210

PATIENT
  Age: 65 Year
  Sex: Female

DRUGS (1)
  1. XYREM [Suspect]
     Active Substance: SODIUM OXYBATE
     Indication: NARCOLEPSY
     Route: 048
     Dates: start: 200308, end: 2013

REACTIONS (3)
  - Knee operation [None]
  - Joint injury [None]
  - Fall [None]

NARRATIVE: CASE EVENT DATE: 20140512
